FAERS Safety Report 19025019 (Version 1)
Quarter: 2021Q1

REPORT INFORMATION
  Report Type: Other
  Country: US (occurrence: US)
  Receive Date: 20210318
  Receipt Date: 20210318
  Transmission Date: 20210420
  Serious: Yes (Hospitalization, Other)
  Sender: FDA-Public Use
  Company Number: US-ROCHE-2789975

PATIENT

DRUGS (2)
  1. PERTUZUMAB. [Suspect]
     Active Substance: PERTUZUMAB
     Indication: HER2 POSITIVE BREAST CANCER
     Route: 065
  2. TRASTUZUMAB. [Suspect]
     Active Substance: TRASTUZUMAB
     Indication: HER2 POSITIVE BREAST CANCER
     Route: 065

REACTIONS (8)
  - Deep vein thrombosis [Unknown]
  - Chest pain [Unknown]
  - Diarrhoea [Unknown]
  - Ejection fraction decreased [Unknown]
  - Angiopathy [Unknown]
  - Cardiac disorder [Unknown]
  - Hypertension [Unknown]
  - Atrial fibrillation [Unknown]
